FAERS Safety Report 9165670 (Version 3)
Quarter: 2014Q1

REPORT INFORMATION
  Report Type: Spontaneous
  Country: US (occurrence: None)
  Receive Date: 20130228
  Receipt Date: 20140113
  Transmission Date: 20141002
  Serious: Yes (Hospitalization, Other)
  Sender: FDA-Public Use
  Company Number: JPI-P-029935

PATIENT
  Age: 57 Year
  Sex: Male
  Weight: 90.72 kg

DRUGS (14)
  1. XYREM [Suspect]
     Indication: CATAPLEXY
     Dosage: 4.5 GM (2.25 FM, 2 IN 1 D), ORAL
     Route: 048
     Dates: start: 20130111, end: 2013
  2. PROZAC FLUOXETINE HYDROCHLORIDE [Concomitant]
  3. RITALIN METHYLPHENIDATE HYDROCHLORIDE [Concomitant]
  4. LAMOTRIGINE [Concomitant]
  5. ATORVASTATIN CALCIUM [Concomitant]
  6. HYDROCHLOROTHIAZIDE [Concomitant]
  7. ALTACE RAMIPRIL [Concomitant]
  8. IRON [Concomitant]
  9. MULTIVITAMINS [Concomitant]
  10. VITAMIN D [Concomitant]
  11. ASPIRIN [Concomitant]
  12. NAPROXIN NAPROXEN SODIUM [Concomitant]
  13. OMEPRAZOLE [Concomitant]
  14. PROVIGIL (MODAFINIL) [Concomitant]

REACTIONS (12)
  - Pyrexia [None]
  - Chills [None]
  - Abdominal tenderness [None]
  - Gallbladder disorder [None]
  - Neoplasm of appendix [None]
  - Pain [None]
  - Appendicitis [None]
  - Cholecystitis [None]
  - Dyspnoea [None]
  - Pulmonary oedema [None]
  - Biliary abscess [None]
  - Pleural effusion [None]
